FAERS Safety Report 14661854 (Version 2)
Quarter: 2018Q4

REPORT INFORMATION
  Report Type: Report from Study
  Country: US (occurrence: US)
  Receive Date: 20180320
  Receipt Date: 20181010
  Transmission Date: 20190204
  Serious: Yes (Other)
  Sender: FDA-Public Use
  Company Number: PHEH2018US010850

PATIENT
  Sex: Male

DRUGS (1)
  1. ENTRESTO [Suspect]
     Active Substance: SACUBITRIL\VALSARTAN
     Indication: PRODUCT USED FOR UNKNOWN INDICATION
     Dosage: UNK
     Route: 048

REACTIONS (10)
  - Pain [Unknown]
  - Dizziness [Unknown]
  - Muscle rupture [Unknown]
  - Balance disorder [Unknown]
  - Movement disorder [Unknown]
  - Tendon disorder [Unknown]
  - Concomitant disease aggravated [Unknown]
  - Chest pain [Unknown]
  - Memory impairment [Unknown]
  - Fatigue [Unknown]
